FAERS Safety Report 6642966-5 (Version None)
Quarter: 2010Q1

REPORT INFORMATION
  Report Type: 
  Country: None (occurrence: None)
  Receive Date: 20100319
  Receipt Date: 20100312
  Transmission Date: 20100710
  Serious: Yes (Congenital Anomaly)
  Sender: FDA-Public Use
  Company Number: A0680570A

PATIENT
  Sex: Female

DRUGS (3)
  1. PAXIL [Suspect]
     Indication: DEPRESSION
     Dates: start: 20001201, end: 20020705
  2. VITAMIN TAB [Concomitant]
  3. INSULIN [Concomitant]

REACTIONS (3)
  - DRUG EXPOSURE DURING PREGNANCY [None]
  - SUPRAVENTRICULAR TACHYCARDIA [None]
  - WOLFF-PARKINSON-WHITE SYNDROME [None]
